FAERS Safety Report 7349781-8 (Version None)
Quarter: 2011Q1

REPORT INFORMATION
  Report Type: 
  Country: None (occurrence: None)
  Receive Date: 20110302
  Receipt Date: 20110221
  Transmission Date: 20110831
  Serious: Yes (Hospitalization)
  Sender: FDA-Public Use
  Company Number: 2011-0183

PATIENT
  Age: 14 Year
  Sex: Male
  Weight: 43 kg

DRUGS (2)
  1. INCRELEX [Suspect]
     Indication: PRODUCT USED FOR UNKNOWN INDICATION
     Dates: start: 20101213, end: 20110111
  2. GENOTROPINE (SOMATROPIN) [Concomitant]

REACTIONS (5)
  - PAPILLOEDEMA [None]
  - VISION BLURRED [None]
  - HEADACHE [None]
  - INTRACRANIAL PRESSURE INCREASED [None]
  - DIPLOPIA [None]
